FAERS Safety Report 8401740-X (Version None)
Quarter: 2012Q2

REPORT INFORMATION
  Report Type: 
  Country: None (occurrence: None)
  Receive Date: 20120529
  Receipt Date: 20091117
  Transmission Date: 20120825
  Serious: Yes (Other)
  Sender: FDA-Public Use
  Company Number: 007971

PATIENT
  Age: 70 Year
  Sex: Male

DRUGS (6)
  1. PHENYTOIN [Concomitant]
  2. MAALOX (ALUMINIUM HYDROXIDE_MAGNESIUM HYDROXIDE) [Concomitant]
  3. PLETAL [Suspect]
     Dosage: 100 MG, BID, ORAL
     Route: 048
     Dates: start: 20090511, end: 20091102
  4. MAGLAX (MAGNESIUM OXIDE) [Concomitant]
  5. SYMMETREL [Concomitant]
  6. FAMOTIDINE [Concomitant]

REACTIONS (4)
  - UPPER GASTROINTESTINAL HAEMORRHAGE [None]
  - GASTROINTESTINAL CARCINOMA [None]
  - INTERNATIONAL NORMALISED RATIO INCREASED [None]
  - PROTHROMBIN TIME PROLONGED [None]
